FAERS Safety Report 5312872-7 (Version None)
Quarter: 2007Q1

REPORT INFORMATION
  Report Type: 
  Country: None (occurrence: None)
  Receive Date: 20070201
  Receipt Date: 20061218
  Transmission Date: 20070707
  Serious: No
  Sender: FDA-Public Use
  Company Number: 259550

PATIENT
  Age: 70 Year
  Sex: Female
  Weight: 107.9 kg

DRUGS (6)
  1. LEVEMIR [Suspect]
     Indication: INSULIN-REQUIRING TYPE II DIABETES MELLITUS
     Dosage: 40 IU, BID, SUBCUTANEOUS
     Route: 058
     Dates: start: 20061213
  2. GLUCOFORMIN (METFORMIN HYDROCHLORIDE) TABLET [Concomitant]
  3. WARFARIN SODIUM [Concomitant]
  4. LESCOL /01224501/(FLUVASTATIN) [Concomitant]
  5. METOPROLOL TARTRATE [Concomitant]
  6. FUROSEMIDE [Concomitant]

REACTIONS (6)
  - INJECTION SITE ERYTHEMA [None]
  - INJECTION SITE INFLAMMATION [None]
  - INJECTION SITE MASS [None]
  - INJECTION SITE RASH [None]
  - INJECTION SITE SWELLING [None]
  - INJECTION SITE WARMTH [None]
